FAERS Safety Report 10301508 (Version 1)
Quarter: 2014Q3

REPORT INFORMATION
  Report Type: Spontaneous
  Country: NL (occurrence: NL)
  Receive Date: 20140714
  Receipt Date: 20140714
  Transmission Date: 20150326
  Serious: Yes (Death)
  Sender: FDA-Public Use
  Company Number: NL-AMGEN-NLDSP2014051530

PATIENT
  Age: 86 Year
  Sex: Male

DRUGS (2)
  1. CALCI CHEW [Concomitant]
     Dosage: 500 MG\ 400 IE
  2. XGEVA [Suspect]
     Active Substance: DENOSUMAB
     Indication: PRODUCT USED FOR UNKNOWN INDICATION
     Dosage: 120 MG, Q4WK
     Route: 058
     Dates: end: 20140617

REACTIONS (1)
  - Death [Fatal]
